FAERS Safety Report 17510680 (Version 1)
Quarter: 2020Q1

REPORT INFORMATION
  Report Type: Spontaneous
  Country: JP (occurrence: JP)
  Receive Date: 20200306
  Receipt Date: 20200306
  Transmission Date: 20200409
  Serious: Yes (Other)
  Sender: FDA-Public Use
  Company Number: JP-ASTRAZENECA-2019SF67558

PATIENT
  Age: 81 Year
  Sex: Female
  Weight: 54 kg

DRUGS (16)
  1. REBAMIPIDE [Concomitant]
     Active Substance: REBAMIPIDE
     Indication: CATARACT OPERATION
     Route: 048
     Dates: start: 20190514, end: 20190518
  2. MYSERA [Concomitant]
     Active Substance: MOMETASONE FUROATE
     Indication: PRURITUS
     Route: 062
     Dates: start: 20180301
  3. MINOCYCLINE HYDROCHLORIDE. [Concomitant]
     Active Substance: MINOCYCLINE HYDROCHLORIDE
     Indication: SKIN INFECTION
     Route: 048
     Dates: start: 20180201, end: 20180620
  4. REBAMIPIDE [Concomitant]
     Active Substance: REBAMIPIDE
     Indication: CATARACT OPERATION
     Route: 048
     Dates: start: 20190507, end: 20190511
  5. REBAMIPIDE [Concomitant]
     Active Substance: REBAMIPIDE
     Indication: CATARACT
     Route: 048
     Dates: start: 20190514, end: 20190518
  6. MYDRIN-P [Concomitant]
     Active Substance: PHENYLEPHRINE HYDROCHLORIDE\TROPICAMIDE
     Indication: CATARACT
     Route: 047
     Dates: start: 20190508
  7. BROMFENAC NA [Concomitant]
     Indication: CATARACT
     Route: 047
     Dates: start: 20190508, end: 20190523
  8. CEFCAPENE PIVOXIL HYDROCHLORIDE HYDRATE [Concomitant]
     Active Substance: CEFCAPENE PIVOXIL HYDROCHLORIDE HYDRATE
     Indication: CATARACT OPERATION
     Route: 048
     Dates: start: 20190507, end: 20190511
  9. CEFCAPENE PIVOXIL HYDROCHLORIDE HYDRATE [Concomitant]
     Active Substance: CEFCAPENE PIVOXIL HYDROCHLORIDE HYDRATE
     Indication: CATARACT OPERATION
     Route: 048
     Dates: start: 20190514, end: 20190518
  10. VEGAMOX [Concomitant]
     Active Substance: MOXIFLOXACIN HYDROCHLORIDE
     Indication: CATARACT
     Route: 047
     Dates: start: 20190508, end: 20190523
  11. IRESSA [Suspect]
     Active Substance: GEFITINIB
     Indication: NON-SMALL CELL LUNG CANCER
     Route: 048
     Dates: start: 20200130
  12. FML [Concomitant]
     Active Substance: FLUOROMETHOLONE
     Indication: CATARACT
     Route: 047
     Dates: start: 20190508, end: 20190523
  13. FEXOFENADINE HYDROCHLORIDE. [Concomitant]
     Active Substance: FEXOFENADINE HYDROCHLORIDE
     Indication: SKIN INFECTION
     Route: 048
     Dates: start: 20180201, end: 20180228
  14. ROXITHROMYCIN [Concomitant]
     Active Substance: ROXITHROMYCIN
     Indication: SKIN INFECTION
     Route: 048
     Dates: start: 20180621
  15. REBAMIPIDE [Concomitant]
     Active Substance: REBAMIPIDE
     Indication: CATARACT
     Route: 048
     Dates: start: 20190507, end: 20190511
  16. IRESSA [Suspect]
     Active Substance: GEFITINIB
     Indication: NON-SMALL CELL LUNG CANCER
     Route: 048
     Dates: start: 20170719, end: 20191122

REACTIONS (6)
  - Diarrhoea [Recovering/Resolving]
  - Conjunctivitis [Recovering/Resolving]
  - Malignant neoplasm progression [Unknown]
  - Ulcerative keratitis [Not Recovered/Not Resolved]
  - Punctate keratitis [Unknown]
  - Eczema [Recovering/Resolving]

NARRATIVE: CASE EVENT DATE: 20170726
